FAERS Safety Report 8789597 (Version 1)
Quarter: 2012Q4

REPORT INFORMATION
  Report Type: Spontaneous
  Country: US (occurrence: None)
  Receive Date: 20120905
  Receipt Date: 20120905
  Transmission Date: 20130627
  Serious: Yes (Hospitalization)
  Sender: FDA-Public Use
  Company Number: USA/USA/12/0025681

PATIENT
  Age: 19 Year
  Sex: Male

DRUGS (4)
  1. CITALOPRAM [Suspect]
     Indication: DRUG USE FOR UNKNOWN INDICATION
     Route: 048
  2. LAMOTRIGINE [Suspect]
     Indication: DRUG USE FOR UNKNOWN INDICATION
     Route: 048
  3. ARIPIRAZOLE (ARIPIPRAZOLE) [Concomitant]
  4. LORAZEPAM (LORAZEPAM) [Concomitant]

REACTIONS (19)
  - Nystagmus [None]
  - Electrocardiogram QRS complex prolonged [None]
  - Bundle branch block right [None]
  - Ventricular tachycardia [None]
  - Unresponsive to stimuli [None]
  - Serotonin syndrome [None]
  - Pyrexia [None]
  - Speech disorder [None]
  - Agitation [None]
  - Lethargy [None]
  - PCO2 decreased [None]
  - PO2 increased [None]
  - Blood sodium decreased [None]
  - Blood potassium decreased [None]
  - Blood chloride increased [None]
  - Blood bicarbonate decreased [None]
  - Blood creatinine increased [None]
  - Blood glucose increased [None]
  - Overdose [None]
